FAERS Safety Report 5446705-5 (Version None)
Quarter: 2007Q3

REPORT INFORMATION
  Report Type: 
  Country: None (occurrence: None)
  Receive Date: 20070907
  Receipt Date: 20070516
  Transmission Date: 20080115
  Serious: No
  Sender: FDA-Public Use
  Company Number: US-BOEHRINGER INGELHEIM PHARMACEUTICALS, INC.-2007-BP-06695BP

PATIENT
  Sex: Female

DRUGS (2)
  1. COMBIVENT [Suspect]
     Indication: HYPERSENSITIVITY
     Route: 055
     Dates: start: 20070101
  2. DURADEX [Concomitant]
     Indication: NASAL DECONGESTION THERAPY

REACTIONS (1)
  - THROAT IRRITATION [None]
